FAERS Safety Report 7726764-7 (Version None)
Quarter: 2011Q3

REPORT INFORMATION
  Report Type: 
  Country: None (occurrence: None)
  Receive Date: 20110902
  Receipt Date: 20110822
  Transmission Date: 20111222
  Serious: Yes (Hospitalization, Disabling)
  Sender: FDA-Public Use
  Company Number: US-GLAXOSMITHKLINE-A0870443A

PATIENT
  Age: 72 Year
  Sex: Male
  Weight: 113.6 kg

DRUGS (13)
  1. AVANDIA [Suspect]
     Indication: DIABETES MELLITUS
     Dosage: 8MG PER DAY
     Route: 048
     Dates: start: 20010821, end: 20050101
  2. MONOPRIL [Concomitant]
  3. LIPITOR [Concomitant]
  4. PRAZOSIN HCL [Concomitant]
  5. VOLMAX [Concomitant]
  6. FOSINOPRIL SODIUM [Concomitant]
  7. ROBINUL [Concomitant]
  8. ZOCOR [Concomitant]
  9. TRIMOX [Concomitant]
  10. PRAZOSIN HCL [Concomitant]
  11. COUMADIN [Concomitant]
     Indication: DEEP VEIN THROMBOSIS
  12. FAMOTIDINE [Concomitant]
  13. FLOMAX [Concomitant]

REACTIONS (22)
  - CEREBROVASCULAR ACCIDENT [None]
  - ABASIA [None]
  - PAIN [None]
  - COMMUNICATION DISORDER [None]
  - INCONTINENCE [None]
  - NOCTURIA [None]
  - DYSPHAGIA [None]
  - TRANSIENT ISCHAEMIC ATTACK [None]
  - FLUID RETENTION [None]
  - WEIGHT INCREASED [None]
  - RED BLOOD CELL COUNT DECREASED [None]
  - IMMOBILE [None]
  - DIPLOPIA [None]
  - HEMIPLEGIA [None]
  - WEIGHT DECREASED [None]
  - APHASIA [None]
  - DYSSTASIA [None]
  - ILL-DEFINED DISORDER [None]
  - GASTROSTOMY [None]
  - DIARRHOEA [None]
  - FATIGUE [None]
  - CYSTITIS [None]
